FAERS Safety Report 7865090-2 (Version None)
Quarter: 2011Q4

REPORT INFORMATION
  Report Type: 
  Country: None (occurrence: None)
  Receive Date: 20111028
  Receipt Date: 20101012
  Transmission Date: 20120403
  Serious: No
  Sender: FDA-Public Use
  Company Number: US-GLAXOSMITHKLINE-A0886142A

PATIENT
  Age: 66 Year
  Sex: Female

DRUGS (10)
  1. ZETIA [Concomitant]
  2. FIBER [Concomitant]
  3. VITAMIN E [Concomitant]
  4. ASPIRIN [Concomitant]
  5. ADVAIR DISKUS 100/50 [Suspect]
     Indication: CHRONIC OBSTRUCTIVE PULMONARY DISEASE
     Dosage: 1PUFF TWICE PER DAY
     Route: 055
     Dates: start: 20030101
  6. NEXIUM [Concomitant]
  7. PRAVASTATIN [Concomitant]
  8. MULTI-VITAMIN [Concomitant]
  9. COMBIVENT [Concomitant]
  10. CALCIUM CARBONATE [Concomitant]

REACTIONS (3)
  - PRODUCT QUALITY ISSUE [None]
  - INHALATION THERAPY [None]
  - COUGH [None]
